FAERS Safety Report 11896799 (Version 1)
Quarter: 2016Q1

REPORT INFORMATION
  Report Type: Spontaneous
  Country: FR (occurrence: FR)
  Receive Date: 20160107
  Receipt Date: 20160107
  Transmission Date: 20160526
  Serious: Yes (Hospitalization, Other)
  Sender: FDA-Public Use
  Company Number: FR-BRISTOL-MYERS SQUIBB COMPANY-BMS-2015-092099

PATIENT
  Age: 70 Year
  Sex: Male

DRUGS (1)
  1. COUMADINE [Suspect]
     Active Substance: WARFARIN SODIUM
     Indication: PRODUCT USED FOR UNKNOWN INDICATION
     Dosage: 1 DF, QD
     Route: 065
     Dates: start: 201309

REACTIONS (8)
  - Radiation proctitis [Unknown]
  - Acute kidney injury [Unknown]
  - Overdose [Unknown]
  - Pelvic fracture [Unknown]
  - Generalised oedema [Unknown]
  - Rectal haemorrhage [Recovered/Resolved]
  - Anaemia [Recovered/Resolved]
  - Prostatic obstruction [Unknown]

NARRATIVE: CASE EVENT DATE: 20150810
